FAERS Safety Report 25897278 (Version 1)
Quarter: 2025Q4

REPORT INFORMATION
  Report Type: Spontaneous
  Country: US (occurrence: US)
  Receive Date: 20251008
  Receipt Date: 20251008
  Transmission Date: 20260117
  Serious: No
  Sender: TEVA
  Company Number: US-TEVA-VS-3378206

PATIENT
  Age: 80 Year
  Sex: Female

DRUGS (1)
  1. ESTRADIOL [Suspect]
     Active Substance: ESTRADIOL
     Indication: Product used for unknown indication
     Route: 065
     Dates: start: 2023

REACTIONS (4)
  - Drug ineffective [Unknown]
  - Product quality issue [Unknown]
  - Poor quality product administered [Unknown]
  - Device issue [Unknown]
